FAERS Safety Report 4705776-1 (Version None)
Quarter: 2005Q3

REPORT INFORMATION
  Report Type: 
  Country: None (occurrence: None)
  Receive Date: 20050701
  Receipt Date: 20050324
  Transmission Date: 20060218
  Serious: Yes (Hospitalization)
  Sender: FDA-Public Use
  Company Number: US-MERCK-0503USA04638

PATIENT
  Age: 49 Year
  Sex: Female
  Weight: 84 kg

DRUGS (15)
  1. VIOXX [Suspect]
     Indication: ARTHRITIS
     Route: 048
     Dates: start: 20010401, end: 20040901
  2. ZETIA [Concomitant]
     Indication: GASTRIC DISORDER
     Route: 065
  3. ALLEGRA D 24 HOUR [Concomitant]
     Indication: HYPERSENSITIVITY
     Route: 065
  4. LEVOXYL [Concomitant]
     Indication: THYROID DISORDER
     Route: 065
  5. DIOVAN [Concomitant]
     Indication: HYPERTENSION
     Route: 065
  6. OS-CAL 500 + D [Concomitant]
     Indication: BONE DISORDER
     Route: 065
     Dates: start: 19920101
  7. CHONDROITIN SULFATE SODIUM AND GLUCOSAMINE HYDROCHLORIDE [Concomitant]
     Indication: ARTHROPATHY
     Route: 065
  8. PREVACID [Concomitant]
     Indication: GASTROOESOPHAGEAL REFLUX DISEASE
     Route: 065
  9. FOSAMAX [Concomitant]
     Indication: BONE DISORDER
     Route: 065
  10. TRAZODONE HYDROCHLORIDE [Concomitant]
     Indication: SLEEP DISORDER
     Route: 065
  11. CELEBREX [Concomitant]
     Route: 065
  12. TYLENOL [Concomitant]
     Route: 065
  13. PREMPRO [Concomitant]
     Indication: THYROID DISORDER
     Route: 065
     Dates: start: 19920101
  14. PROZAC [Concomitant]
     Route: 065
  15. FLUOXETINE [Concomitant]
     Indication: NERVOUSNESS
     Route: 065
     Dates: start: 19920101

REACTIONS (3)
  - ANXIETY [None]
  - DEPRESSION [None]
  - TRANSIENT ISCHAEMIC ATTACK [None]
